FAERS Safety Report 20258439 (Version 2)
Quarter: 2022Q1

REPORT INFORMATION
  Report Type: Spontaneous
  Country: CA (occurrence: CA)
  Receive Date: 20211230
  Receipt Date: 20220110
  Transmission Date: 20220423
  Serious: Yes (Other)
  Sender: FDA-Public Use
  Company Number: CA-TEVA-2021-CA-1992965

PATIENT
  Age: 42 Year
  Sex: Male

DRUGS (4)
  1. BUPRENORPHINE HYDROCHLORIDE\NALOXONE HYDROCHLORIDE [Suspect]
     Active Substance: BUPRENORPHINE HYDROCHLORIDE\NALOXONE HYDROCHLORIDE
     Indication: Drug use disorder
     Route: 065
  2. FENTANYL [Suspect]
     Active Substance: FENTANYL
     Indication: Substance use
     Dosage: SMOKING
     Route: 050
  3. GABAPENTIN [Suspect]
     Active Substance: GABAPENTIN
     Indication: Drug withdrawal syndrome
     Route: 065
  4. GABAPENTIN [Suspect]
     Active Substance: GABAPENTIN
     Route: 065

REACTIONS (3)
  - Drug withdrawal syndrome [Recovering/Resolving]
  - Substance use [Unknown]
  - Off label use [Unknown]
